FAERS Safety Report 13101961 (Version 2)
Quarter: 2017Q1

REPORT INFORMATION
  Report Type: Spontaneous
  Country: US (occurrence: US)
  Receive Date: 20170110
  Receipt Date: 20170207
  Transmission Date: 20170428
  Serious: Yes (Hospitalization, Disabling, Other)
  Sender: FDA-Public Use
  Company Number: US-ASTRAZENECA-2017SE01538

PATIENT
  Age: 26838 Day
  Sex: Male
  Weight: 101 kg

DRUGS (11)
  1. BRILINTA [Suspect]
     Active Substance: TICAGRELOR
     Indication: STENT PLACEMENT
     Dosage: 90.0MG UNKNOWN
     Route: 048
     Dates: start: 20161207, end: 20161207
  2. MEVACOR [Concomitant]
     Active Substance: LOVASTATIN
     Dosage: 10.0MG UNKNOWN
  3. BRILINTA [Suspect]
     Active Substance: TICAGRELOR
     Indication: VASCULAR DEVICE USER
     Dosage: 180.0MG ONCE/SINGLE ADMINISTRATION
     Route: 048
     Dates: start: 20161207, end: 20161207
  4. LABETALOL [Concomitant]
     Active Substance: LABETALOL\LABETALOL HYDROCHLORIDE
     Route: 048
  5. BENICAR HCT [Concomitant]
     Active Substance: HYDROCHLOROTHIAZIDE\OLMESARTAN MEDOXOMIL
     Dosage: 40/25
  6. BRILINTA [Suspect]
     Active Substance: TICAGRELOR
     Indication: STENT PLACEMENT
     Dosage: 180.0MG ONCE/SINGLE ADMINISTRATION
     Route: 048
     Dates: start: 20161207, end: 20161207
  7. AMLODIPINE [Concomitant]
     Active Substance: AMLODIPINE BESYLATE
     Dosage: 5.0MG UNKNOWN
  8. ASPIRIN. [Concomitant]
     Active Substance: ASPIRIN
     Dosage: 81.0MG UNKNOWN
  9. BRILINTA [Suspect]
     Active Substance: TICAGRELOR
     Indication: VASCULAR DEVICE USER
     Dosage: 90.0MG UNKNOWN
     Route: 048
     Dates: start: 20161207, end: 20161207
  10. LISINOPRIL. [Concomitant]
     Active Substance: LISINOPRIL
     Dosage: 40.0MG UNKNOWN
     Route: 048
  11. ZETIA [Concomitant]
     Active Substance: EZETIMIBE
     Dosage: 10.0MG UNKNOWN

REACTIONS (3)
  - Hypertension [Unknown]
  - Haemorrhagic stroke [Recovered/Resolved with Sequelae]
  - Hyperlipidaemia [Unknown]

NARRATIVE: CASE EVENT DATE: 20161208
